FAERS Safety Report 19056371 (Version 1)
Quarter: 2021Q1

REPORT INFORMATION
  Report Type: Spontaneous
  Country: US (occurrence: US)
  Receive Date: 20210324
  Receipt Date: 20210324
  Transmission Date: 20210420
  Serious: Yes (Other)
  Sender: FDA-Public Use
  Company Number: None

PATIENT
  Sex: Male

DRUGS (1)
  1. ORENCIA [Suspect]
     Active Substance: ABATACEPT
     Route: 058
     Dates: start: 20200724

REACTIONS (3)
  - Therapy interrupted [None]
  - Osteoarthritis [None]
  - Condition aggravated [None]

NARRATIVE: CASE EVENT DATE: 20210323
